FAERS Safety Report 7784133-8 (Version None)
Quarter: 2011Q3

REPORT INFORMATION
  Report Type: 
  Country: None (occurrence: None)
  Receive Date: 20110901
  Receipt Date: 20110502
  Transmission Date: 20111222
  Serious: No
  Sender: FDA-Public Use
  Company Number: 279489USA

PATIENT
  Sex: Female

DRUGS (1)
  1. METOCLOPRAMIDE [Suspect]
     Dosage: (5 MG)

REACTIONS (4)
  - PANIC ATTACK [None]
  - HYPERHIDROSIS [None]
  - ANXIETY [None]
  - DEPRESSION [None]
